FAERS Safety Report 25589097 (Version 1)
Quarter: 2025Q3

REPORT INFORMATION
  Report Type: Spontaneous
  Country: US (occurrence: US)
  Receive Date: 20250722
  Receipt Date: 20250722
  Transmission Date: 20251021
  Serious: Yes (Other)
  Sender: COOPERSURGICAL
  Company Number: US-COOPERSURGICAL, INC.-2025CPS005536

PATIENT
  Age: 49 Year
  Sex: Female
  Weight: 81.633 kg

DRUGS (3)
  1. PARAGARD T 380A [Suspect]
     Active Substance: COPPER
     Indication: Contraception
     Route: 015
     Dates: start: 20130131
  2. ARMOUR THYROID [Concomitant]
     Active Substance: THYROID, PORCINE
     Dates: start: 200001, end: 202211
  3. UNITHROID [Concomitant]
     Active Substance: LEVOTHYROXINE SODIUM
     Dates: start: 200001, end: 202211

REACTIONS (20)
  - Hysterectomy [Recovered/Resolved]
  - Reproductive complication associated with device [Not Recovered/Not Resolved]
  - Gastrointestinal obstruction [Recovered/Resolved]
  - Device breakage [Recovered/Resolved]
  - Foreign body in reproductive tract [Recovered/Resolved]
  - Complication of device removal [Recovered/Resolved]
  - Embedded device [Recovered/Resolved]
  - Uterine perforation [Recovered/Resolved]
  - Uterine pain [Recovered/Resolved]
  - Procedural pain [Recovered/Resolved]
  - Haematuria [Recovered/Resolved]
  - Cystitis [Recovered/Resolved]
  - Emotional distress [Unknown]
  - Urinary incontinence [Unknown]
  - Pyrexia [Unknown]
  - Musculoskeletal pain [Unknown]
  - Anaemia [Recovered/Resolved]
  - Abnormal uterine bleeding [Recovered/Resolved]
  - Device dislocation [Recovered/Resolved]
  - Pain [Recovered/Resolved]

NARRATIVE: CASE EVENT DATE: 20210222
